FAERS Safety Report 18991912 (Version 1)
Quarter: 2021Q1

REPORT INFORMATION
  Report Type: Spontaneous
  Country: NL (occurrence: FR)
  Receive Date: 20210310
  Receipt Date: 20210310
  Transmission Date: 20210420
  Serious: Yes (Hospitalization)
  Sender: FDA-Public Use
  Company Number: FR-FRESENIUS KABI-FK202102116

PATIENT
  Age: 72 Year
  Sex: Female
  Weight: 63 kg

DRUGS (25)
  1. CYCLOPHOSPHAMIDE. [Suspect]
     Active Substance: CYCLOPHOSPHAMIDE
     Indication: PRODUCT USED FOR UNKNOWN INDICATION
     Dosage: 495 MG, SINGLE ON DAY 3 OF INDUCTION 2
     Route: 065
     Dates: start: 20201224, end: 20201224
  2. PARACETAMOL [Concomitant]
     Active Substance: ACETAMINOPHEN
     Indication: PRODUCT USED FOR UNKNOWN INDICATION
     Dosage: UNK
     Route: 065
  3. INOTUZUMAB OZOGAMICIN [Concomitant]
     Active Substance: INOTUZUMAB OZOGAMICIN
     Dosage: 0.83 MG, SINGLE ON DAY 8 OF INDUCTION 1
     Route: 065
     Dates: start: 20201201, end: 20201201
  4. CYTARABINE (MANUFACTURER UNKNOWN) [Suspect]
     Active Substance: CYTARABINE
     Dosage: 40 MG, SINGLE ON DAY 2 OF INDUCTION 2
     Route: 065
     Dates: start: 20201223, end: 20201223
  5. VINCRISTINE SULFATE. [Suspect]
     Active Substance: VINCRISTINE SULFATE
     Indication: PRODUCT USED FOR UNKNOWN INDICATION
     Dosage: 2 MG, SINGLE ON DAY 8 OF INDUCTION 1
     Route: 065
     Dates: start: 20201201, end: 20201201
  6. VINCRISTINE SULFATE. [Suspect]
     Active Substance: VINCRISTINE SULFATE
     Dosage: 2 MG, SINGLE ON DAY 1 OF INDUCTION 1
     Route: 065
     Dates: start: 20201124, end: 20201124
  7. BROMAZEPAM [Concomitant]
     Active Substance: BROMAZEPAM
     Indication: PRODUCT USED FOR UNKNOWN INDICATION
     Dosage: 0.25 DF, 1X/DAY IN THE EVENING
     Route: 065
  8. INOTUZUMAB OZOGAMICIN [Concomitant]
     Active Substance: INOTUZUMAB OZOGAMICIN
     Dosage: 1.32 MG, SINGLE ON DAY 1 OF INDUCTION 1
     Route: 065
     Dates: start: 20201124, end: 20201124
  9. CYTARABINE (MANUFACTURER UNKNOWN) [Suspect]
     Active Substance: CYTARABINE
     Indication: PRODUCT USED FOR UNKNOWN INDICATION
     Dosage: 40 MG, SINGLE ON DAY 2
     Route: 065
     Dates: start: 20201125, end: 20201125
  10. VINCRISTINE SULFATE. [Suspect]
     Active Substance: VINCRISTINE SULFATE
     Dosage: 2 MG, SINGLE ON DAY 22 OF INDUCTION 1
     Route: 065
     Dates: start: 20201215, end: 20201215
  11. METHOTREXATE. [Suspect]
     Active Substance: METHOTREXATE
     Indication: PRODUCT USED FOR UNKNOWN INDICATION
     Dosage: 15 MG, SINGLE ON DAY 2 OF INDUCTION 1
     Route: 037
     Dates: start: 20201125, end: 20201125
  12. METHOTREXATE. [Suspect]
     Active Substance: METHOTREXATE
     Dosage: 15 MG, SINGLE ON DAY 2 OF INDUCTION 2
     Route: 037
     Dates: start: 20201223, end: 20201223
  13. CYCLOPHOSPHAMIDE. [Suspect]
     Active Substance: CYCLOPHOSPHAMIDE
     Dosage: 495 MG, SINGLE ON DAY 1 OF INDUCTION 2
     Route: 065
     Dates: start: 20201222, end: 20201222
  14. SODIUM BICARBONATE/POTASSIUM CHLORIDE/SODIUM CHLORIDE/MACROGOL 3350 [Concomitant]
     Active Substance: POLYETHYLENE GLYCOL 3350\POTASSIUM CHLORIDE\SODIUM BICARBONATE\SODIUM CHLORIDE
     Indication: CONSTIPATION
     Dosage: 1 DF, AS NEEDED UP TO 2 PER DAY
     Route: 065
  15. FILGRASTIM [Concomitant]
     Active Substance: FILGRASTIM
     Indication: APLASIA
     Dosage: 1 DF, DAILY
     Route: 059
     Dates: start: 20210202, end: 20210206
  16. VINCRISTINE SULFATE. [Suspect]
     Active Substance: VINCRISTINE SULFATE
     Dosage: 2 MG, SINGLE ON DAY 15 OF INDUCTION 1
     Route: 065
     Dates: start: 20201208, end: 20201208
  17. SULFAMETHOXAZOLE/TRIMETHOPRIM [Concomitant]
     Active Substance: SULFAMETHOXAZOLE\TRIMETHOPRIM
     Indication: INFECTION PROPHYLAXIS
     Dosage: 1 DF OF 800 MG/160 MG, CYCLIC ON MONDAYS, WEDNESDAYS AND FRIDAYS
     Route: 048
     Dates: start: 20201125
  18. INOTUZUMAB OZOGAMICIN [Concomitant]
     Active Substance: INOTUZUMAB OZOGAMICIN
     Indication: PRODUCT USED FOR UNKNOWN INDICATION
     Dosage: 0.83 MG, SINGLE ON DAY 8 OF INDUCTION 2
     Route: 065
     Dates: start: 20201229, end: 20201229
  19. INOTUZUMAB OZOGAMICIN [Concomitant]
     Active Substance: INOTUZUMAB OZOGAMICIN
     Dosage: 0.83 MG, SINGLE ON DAY 15 OF INDUCTION 1
     Route: 065
     Dates: start: 20201208, end: 20201208
  20. ESOMEPRAZOLE MAGNESIUM. [Concomitant]
     Active Substance: ESOMEPRAZOLE MAGNESIUM
     Indication: PRODUCT USED FOR UNKNOWN INDICATION
     Dosage: UNK, AS NEEDED
     Route: 065
  21. CALCIUM FOLINATE [Concomitant]
     Active Substance: LEUCOVORIN CALCIUM
     Indication: ANAEMIA PROPHYLAXIS
     Dosage: 5 MG, DAILY IN THE MORNING
     Route: 048
     Dates: start: 20201125
  22. VALACICLOVIR HYDROCHLORIDE [Concomitant]
     Active Substance: VALACYCLOVIR HYDROCHLORIDE
     Indication: INFECTION PROPHYLAXIS
     Dosage: 500 MG, 2X/DAY IN THE MORNING AND IN THE EVENING
     Route: 048
     Dates: start: 20201125
  23. INOTUZUMAB OZOGAMICIN [Concomitant]
     Active Substance: INOTUZUMAB OZOGAMICIN
     Dosage: 0.83 MG, SINGLE ON DAY 1 OF INDUCTION 2
     Route: 065
     Dates: start: 20201222, end: 20201222
  24. CYCLOPHOSPHAMIDE. [Suspect]
     Active Substance: CYCLOPHOSPHAMIDE
     Dosage: 495 MG, SINGLE ON DAY 2 OF INDUCTION 2
     Route: 065
     Dates: start: 20201223, end: 20201223
  25. SODIUM BICARBONATE/ALGELDRATE/ALGINIC ACID/MAGNESIUM TRISILICATE [Concomitant]
     Indication: DYSPEPSIA
     Dosage: 1 DF, AS NEEDED UP TO 3 TIMES DAILY AS NEEDED
     Route: 065

REACTIONS (2)
  - Acute kidney injury [Not Recovered/Not Resolved]
  - Sepsis [Not Recovered/Not Resolved]

NARRATIVE: CASE EVENT DATE: 20210206
